FAERS Safety Report 23663021 (Version 1)
Quarter: 2024Q1

REPORT INFORMATION
  Report Type: Spontaneous
  Country: CN (occurrence: CN)
  Receive Date: 20240322
  Receipt Date: 20240322
  Transmission Date: 20240410
  Serious: Yes (Hospitalization)
  Sender: FDA-Public Use
  Company Number: CN-ELI_LILLY_AND_COMPANY-CN202403006716

PATIENT
  Age: 66 Year
  Sex: Male
  Weight: 47.5 kg

DRUGS (3)
  1. CYRAMZA [Suspect]
     Active Substance: RAMUCIRUMAB
     Indication: Cholangiocarcinoma
     Dosage: 350 MG, SINGLE
     Route: 041
     Dates: start: 20240224, end: 20240307
  2. FLUOROURACIL [Suspect]
     Active Substance: FLUOROURACIL
     Indication: Cholangiocarcinoma
     Dosage: 0.23 G, SINGLE
     Route: 041
     Dates: start: 20240225, end: 20240307
  3. IRINOTECAN HYDROCHLORIDE [Suspect]
     Active Substance: IRINOTECAN HYDROCHLORIDE
     Indication: Cholangiocarcinoma
     Dosage: 80 MG, SINGLE
     Route: 041
     Dates: start: 20240224, end: 20240307

REACTIONS (1)
  - Myelosuppression [Recovering/Resolving]

NARRATIVE: CASE EVENT DATE: 20240307
